FAERS Safety Report 5136910-X (Version None)
Quarter: 2006Q4

REPORT INFORMATION
  Report Type: 
  Country: None (occurrence: None)
  Receive Date: 20061023
  Receipt Date: 20061010
  Transmission Date: 20070319
  Serious: Yes (Other)
  Sender: FDA-Public Use
  Company Number: 2006111270

PATIENT
  Age: 69 Year
  Sex: Female

DRUGS (5)
  1. DETRUSITOL SR (TOLTERODINE) [Suspect]
     Indication: POLLAKIURIA
     Dosage: 4 MG (4 MG, 1 IN 1 D), ORAL
     Route: 048
     Dates: start: 20060704, end: 20060704
  2. PHENYTOIN [Concomitant]
  3. KETAS (IBUDILAST) [Concomitant]
  4. TEGRETOL [Concomitant]
  5. LIPITOR [Concomitant]

REACTIONS (2)
  - BLOOD PRESSURE INCREASED [None]
  - DIZZINESS [None]
